FAERS Safety Report 7966685 (Version 4)
Quarter: 2012Q4

REPORT INFORMATION
  Report Type: 
  Country: US (occurrence: US)
  Receive Date: 20110531
  Receipt Date: 20120918
  Transmission Date: 20130627
  Serious: Yes (Hospitalization)
  Sender: FDA-Public Use
  Company Number: US-BAYER-2011-046179

PATIENT
  Age: 31 Year
  Sex: Female
  Weight: 95.24 kg

DRUGS (14)
  1. YAZ [Suspect]
     Indication: PREMENSTRUAL SYNDROME
     Dosage: UNK
     Dates: start: 20080323, end: 20080405
  2. YAZ [Suspect]
     Indication: PREMENSTRUAL SYNDROME
  3. ALBUTEROL [Concomitant]
  4. MINOCYCLINE [Concomitant]
  5. NSAID^S [Concomitant]
  6. ACIPHEX [Concomitant]
     Indication: GASTROOESOPHAGEAL REFLUX DISEASE
     Dosage: UNK
     Dates: start: 20080315, end: 20080405
  7. PRILOSEC [Concomitant]
  8. LEXAPRO [Concomitant]
     Indication: DEPRESSION
  9. LEXAPRO [Concomitant]
     Indication: PREMENSTRUAL SYNDROME
  10. LEXAPRO [Concomitant]
     Indication: PREMENSTRUAL SYNDROME
  11. NEXIUM [Concomitant]
  12. METHYLPREDNISOLONE [Concomitant]
  13. CLARITIN [Concomitant]
     Indication: RHINITIS SEASONAL
  14. ZYRTEC-D [Concomitant]
     Indication: RHINITIS SEASONAL

REACTIONS (9)
  - Pulmonary embolism [None]
  - Chest discomfort [None]
  - Dyspnoea [None]
  - Pain [None]
  - Emotional distress [None]
  - Anhedonia [None]
  - Depression [None]
  - Anxiety [None]
  - Mental disorder [None]
